FAERS Safety Report 6301398-X (Version None)
Quarter: 2009Q3

REPORT INFORMATION
  Report Type: 
  Country: None (occurrence: None)
  Receive Date: 20090805
  Receipt Date: 20090805
  Transmission Date: 20100115
  Serious: No
  Sender: FDA-Public Use
  Company Number: None

PATIENT
  Age: 60 Year
  Sex: Female
  Weight: 64.8644 kg

DRUGS (2)
  1. NORTRIPTYLINE HCL [Suspect]
     Indication: INSOMNIA
     Dosage: 1@BEDTIME 1@DAY PO
     Route: 048
     Dates: start: 20090701, end: 20090720
  2. NORTRIPTYLINE HCL [Suspect]
     Indication: PAIN
     Dosage: 1@BEDTIME 1@DAY PO
     Route: 048
     Dates: start: 20090701, end: 20090720

REACTIONS (2)
  - CONTUSION [None]
  - RASH MACULAR [None]
